FAERS Safety Report 6411139-3 (Version None)
Quarter: 2009Q4

REPORT INFORMATION
  Report Type: 
  Country: None (occurrence: None)
  Receive Date: 20091022
  Receipt Date: 20091014
  Transmission Date: 20100525
  Serious: Yes (Other)
  Sender: FDA-Public Use
  Company Number: US-PFIZER INC-2009273057

PATIENT
  Sex: Male

DRUGS (1)
  1. XALATAN [Suspect]
     Indication: OPEN ANGLE GLAUCOMA
     Dosage: 2 GTT, 1X/DAY
     Route: 047
     Dates: start: 20010901

REACTIONS (4)
  - CORNEAL OEDEMA [None]
  - INTRAOCULAR PRESSURE INCREASED [None]
  - VISION BLURRED [None]
  - VISUAL ACUITY REDUCED [None]
